FAERS Safety Report 12693149 (Version 2)
Quarter: 2016Q4

REPORT INFORMATION
  Report Type: Report from Study
  Country: US (occurrence: US)
  Receive Date: 20160829
  Receipt Date: 20161017
  Transmission Date: 20170207
  Serious: Yes (Death)
  Sender: FDA-Public Use
  Company Number: US-TAIHO ONCOLOGY INC-EU-2016-02145

PATIENT
  Age: 70 Year
  Sex: Female
  Weight: 42.13 kg

DRUGS (16)
  1. LIDOCAINE HYDROCHLORIDE. [Concomitant]
     Active Substance: LIDOCAINE HYDROCHLORIDE
     Route: 048
  2. LONSURF [Suspect]
     Active Substance: TIPIRACIL HYDROCHLORIDE\TRIFLURIDINE
     Indication: COLON CANCER METASTATIC
     Route: 048
     Dates: start: 20160613, end: 2016
  3. AMITIZA [Concomitant]
     Active Substance: LUBIPROSTONE
     Route: 048
  4. LISINOPRIL. [Concomitant]
     Active Substance: LISINOPRIL
     Route: 048
     Dates: start: 20141111
  5. LORAZEPAM. [Concomitant]
     Active Substance: LORAZEPAM
     Indication: INSOMNIA
  6. ZOFRAN [Concomitant]
     Active Substance: ONDANSETRON HYDROCHLORIDE
     Dosage: AS NEEDED
     Route: 048
     Dates: start: 20140429
  7. LORAZEPAM. [Concomitant]
     Active Substance: LORAZEPAM
     Indication: NAUSEA
     Dosage: 1 TO 2 TABLETS
     Route: 048
  8. NYSTATIN. [Concomitant]
     Active Substance: NYSTATIN
     Route: 048
     Dates: start: 20140701
  9. SIMVASTATIN. [Concomitant]
     Active Substance: SIMVASTATIN
     Route: 048
  10. CAPHOSOL [Concomitant]
     Active Substance: CALCIUM CHLORIDE\SODIUM CHLORIDE\SODIUM PHOSPHATE, DIBASIC, ANHYDROUS\SODIUM PHOSPHATE, MONOBASIC, ANHYDROUS
     Route: 048
     Dates: start: 20140714
  11. GABAPENTIN. [Concomitant]
     Active Substance: GABAPENTIN
     Route: 048
     Dates: start: 20150330
  12. DEXAMETHASONE. [Concomitant]
     Active Substance: DEXAMETHASONE
     Indication: DECREASED APPETITE
     Route: 048
  13. LORAZEPAM. [Concomitant]
     Active Substance: LORAZEPAM
     Indication: ANXIETY
  14. OXYCODONE HYDROCHLORIDE. [Concomitant]
     Active Substance: OXYCODONE HYDROCHLORIDE
     Indication: PAIN
     Dosage: EVERY 4-6 HOURS
     Route: 048
     Dates: start: 20140429
  15. ROPINIROLE HYDROCHLORIDE. [Concomitant]
     Active Substance: ROPINIROLE HYDROCHLORIDE
     Route: 048
  16. METOPROLOL TARTRATE. [Concomitant]
     Active Substance: METOPROLOL TARTRATE
     Route: 048
     Dates: start: 20150624

REACTIONS (9)
  - Asthenia [Unknown]
  - Disease progression [Fatal]
  - Blood creatinine increased [Unknown]
  - Fatigue [Unknown]
  - Cachexia [Unknown]
  - Weight decreased [Unknown]
  - Pleural effusion [Unknown]
  - Gait disturbance [Unknown]
  - Carcinoembryonic antigen increased [Unknown]

NARRATIVE: CASE EVENT DATE: 2016
